FAERS Safety Report 5919480-5 (Version None)
Quarter: 2008Q3

REPORT INFORMATION
  Report Type: 
  Country: None (occurrence: None)
  Receive Date: 20080909
  Receipt Date: 20070319
  Transmission Date: 20090109
  Serious: Yes (Hospitalization)
  Sender: FDA-Public Use
  Company Number: 163-20785-07031081

PATIENT
  Age: 63 Year
  Sex: Female

DRUGS (35)
  1. THALOMID [Suspect]
     Indication: MULTIPLE MYELOMA
     Dosage: 50 MG, QD, ORAL ; ORAL
     Route: 048
     Dates: end: 20061106
  2. THALOMID [Suspect]
     Indication: MULTIPLE MYELOMA
     Dosage: 50 MG, QD, ORAL ; ORAL
     Route: 048
     Dates: start: 20070101
  3. DEXAMETHASONE TAB [Suspect]
     Indication: MULTIPLE MYELOMA
     Dosage: 20 MG, DAYS 1, 4, 8 AND 11 EVERY 28 DAYS, ORAL
     Route: 048
     Dates: start: 20061127, end: 20070220
  4. VELCADE [Suspect]
     Indication: MULTIPLE MYELOMA
     Dosage: 1.8 MG, DAYS 1, 4, 8, AND 11 EVERY 28 DAYS, INTRAVENOUS ; INTRAVENOUS
     Route: 042
     Dates: start: 20061023, end: 20070115
  5. VELCADE [Suspect]
     Indication: MULTIPLE MYELOMA
     Dosage: 1.8 MG, DAYS 1, 4, 8, AND 11 EVERY 28 DAYS, INTRAVENOUS ; INTRAVENOUS
     Route: 042
     Dates: start: 20070101
  6. CISPLATIN [Suspect]
     Indication: MULTIPLE MYELOMA
     Dates: start: 20060331, end: 20060101
  7. ADRIAMYCIN PFS [Suspect]
     Indication: MULTIPLE MYELOMA
     Dates: start: 20060331, end: 20060101
  8. CYCLOPHOSPHAMIDE [Suspect]
     Indication: MULTIPLE MYELOMA
     Dates: start: 20060331, end: 20060101
  9. ETOPOSIDE [Suspect]
     Indication: MULTIPLE MYELOMA
     Dates: start: 20060331, end: 20060101
  10. TYLENOL (PARACETAMOL) (500 MILLIGRAM, TABLETS) [Concomitant]
  11. LANTUS [Concomitant]
  12. HUMALOG [Concomitant]
  13. DESYREL [Concomitant]
  14. PREVACID [Concomitant]
  15. MAXZIDE (DYAZIDE) (TABLETS) [Concomitant]
  16. MOTRIN [Concomitant]
  17. ARANESP [Concomitant]
  18. KYTRIL (GRANISETRON) (TABLETS) [Concomitant]
  19. ACYCLOVIR [Concomitant]
  20. DAPSONE [Concomitant]
  21. STOOL SOFTENER (DOCUSATE SODIUM) [Concomitant]
  22. FOLIC ACID [Concomitant]
  23. MUCINEX [Concomitant]
  24. VASOTEC (ENALAPRIL MALEATE) (TABLETS) [Concomitant]
  25. CO-TRIMOXAZOLE (BACTRIM) (TROCHE) [Concomitant]
  26. DIFLUCAN [Concomitant]
  27. MIRALAX (MACROGOL) (POWDER) [Concomitant]
  28. VAGIFEM (ESTRADIOL) (TABLETS) [Concomitant]
  29. CALCIUM CARBONATE (CALCIUM CARBONATE) [Concomitant]
  30. PYRIDIUM (PHENAZOPYRIDINE HYDROCHLORIDE) [Concomitant]
  31. VITAMIN E (TOCOPHEROL) (TABLETS) [Concomitant]
  32. METFORMIN HCL [Concomitant]
  33. AREDIA [Concomitant]
  34. ULTRAM [Concomitant]
  35. MULTIVITAMIN [Concomitant]

REACTIONS (2)
  - BRONCHITIS [None]
  - TRACHEOBRONCHITIS [None]
